FAERS Safety Report 8804256 (Version 3)
Quarter: 2013Q1

REPORT INFORMATION
  Report Type: Report from Study
  Country: US (occurrence: US)
  Receive Date: 20120924
  Receipt Date: 20130111
  Transmission Date: 20140127
  Serious: Yes (Other)
  Sender: FDA-Public Use
  Company Number: US-BAYER-2012-091962

PATIENT
  Age: 68 Year
  Sex: Male

DRUGS (3)
  1. NEXAVAR [Suspect]
     Indication: HEPATIC CANCER
     Dosage: 400 MG, BID
     Route: 048
     Dates: start: 20120809, end: 20120913
  2. NEXAVAR [Suspect]
     Indication: HEPATIC CANCER
     Dosage: 200 MG, BID
     Dates: start: 20120913
  3. RAPAMUNE [Concomitant]
     Indication: IMMUNOSUPPRESSANT DRUG THERAPY

REACTIONS (7)
  - Angina pectoris [Recovered/Resolved]
  - Chest pain [None]
  - Erythema [Recovering/Resolving]
  - Facial pain [Recovering/Resolving]
  - Stomatitis [None]
  - Chest discomfort [None]
  - Diarrhoea [Recovering/Resolving]
